FAERS Safety Report 18956228 (Version 1)
Quarter: 2021Q1

REPORT INFORMATION
  Report Type: Spontaneous
  Country: US (occurrence: US)
  Receive Date: 20210302
  Receipt Date: 20210302
  Transmission Date: 20210420
  Serious: No
  Sender: FDA-Public Use
  Company Number: US-LUPIN PHARMACEUTICALS INC.-2021-02499

PATIENT
  Age: 35 Year
  Sex: Male

DRUGS (3)
  1. ACETAMINOPHEN. [Suspect]
     Active Substance: ACETAMINOPHEN
     Indication: PHANTOM LIMB SYNDROME
     Dosage: UNK
     Route: 065
  2. GABAPENTIN. [Suspect]
     Active Substance: GABAPENTIN
     Indication: PHANTOM LIMB SYNDROME
     Dosage: UNK
     Route: 065
  3. DRONABINOL. [Concomitant]
     Active Substance: DRONABINOL
     Indication: PHANTOM LIMB SYNDROME
     Dosage: UNK
     Route: 065

REACTIONS (2)
  - Weight increased [Unknown]
  - Cognitive disorder [Unknown]
